FAERS Safety Report 16174660 (Version 2)
Quarter: 2019Q4

REPORT INFORMATION
  Report Type: Spontaneous
  Country: CA (occurrence: CA)
  Receive Date: 20190409
  Receipt Date: 20191217
  Transmission Date: 20200122
  Serious: Yes (Other)
  Sender: FDA-Public Use
  Company Number: CA-TEVA-2019-CA-1035744

PATIENT
  Sex: Male

DRUGS (26)
  1. DESOXIMETASONE. [Concomitant]
     Active Substance: DESOXIMETASONE
     Dosage: 10 MILLIGRAM DAILY;
     Route: 065
  2. DESOXIMETASONE. [Concomitant]
     Active Substance: DESOXIMETASONE
     Dosage: 10 MILLIGRAM DAILY;
     Route: 048
  3. DICLOFENAC [Concomitant]
     Active Substance: DICLOFENAC
     Route: 065
  4. ENBREL [Suspect]
     Active Substance: ETANERCEPT
     Indication: PRODUCT USED FOR UNKNOWN INDICATION
     Route: 065
  5. HUMIRA [Suspect]
     Active Substance: ADALIMUMAB
     Indication: RHEUMATOID ARTHRITIS
     Route: 065
  6. REMICADE [Suspect]
     Active Substance: INFLIXIMAB
     Indication: RHEUMATOID ARTHRITIS
     Route: 065
  7. LEFLUNOMIDE. [Suspect]
     Active Substance: LEFLUNOMIDE
     Indication: RHEUMATOID ARTHRITIS
     Route: 048
  8. DICLOFENAC [Concomitant]
     Active Substance: DICLOFENAC
     Dosage: 100 MILLIGRAM DAILY;
  9. METHOTREXATE. [Suspect]
     Active Substance: METHOTREXATE
     Indication: PRODUCT USED FOR UNKNOWN INDICATION
     Route: 065
  10. HYDROXYCHLOROQUINE SULFATE. [Suspect]
     Active Substance: HYDROXYCHLOROQUINE SULFATE
     Indication: PRODUCT USED FOR UNKNOWN INDICATION
     Route: 065
  11. XELJANZ [Concomitant]
     Active Substance: TOFACITINIB CITRATE
     Indication: RHEUMATOID ARTHRITIS
     Dosage: 10 MILLIGRAM DAILY;
     Route: 048
  12. METHOTREXATE. [Suspect]
     Active Substance: METHOTREXATE
     Route: 065
  13. APO-LEFLUNOMIDE [Suspect]
     Active Substance: LEFLUNOMIDE
     Indication: PRODUCT USED FOR UNKNOWN INDICATION
     Route: 065
  14. ORENCIA [Suspect]
     Active Substance: ABATACEPT
     Indication: PRODUCT USED FOR UNKNOWN INDICATION
     Route: 065
  15. REMICADE [Suspect]
     Active Substance: INFLIXIMAB
     Indication: PRODUCT USED FOR UNKNOWN INDICATION
     Dosage: POWDER FOR SOLUTION INTRAVENOUS
     Route: 042
  16. SULFASALAZINE. [Suspect]
     Active Substance: SULFASALAZINE
     Indication: PRODUCT USED FOR UNKNOWN INDICATION
     Route: 065
  17. SULFASALAZINE. [Suspect]
     Active Substance: SULFASALAZINE
     Indication: RHEUMATOID ARTHRITIS
     Route: 065
  18. XELJANZ [Concomitant]
     Active Substance: TOFACITINIB CITRATE
     Dosage: 20 MILLIGRAM DAILY;
     Route: 048
  19. CORTISONE ACETATE. [Concomitant]
     Active Substance: CORTISONE ACETATE
     Route: 058
  20. RITUXAN [Suspect]
     Active Substance: RITUXIMAB
     Route: 065
  21. DESOXIMETASONE. [Concomitant]
     Active Substance: DESOXIMETASONE
     Dosage: 10 MILLIGRAM DAILY;
  22. RITUXAN [Suspect]
     Active Substance: RITUXIMAB
     Indication: PRODUCT USED FOR UNKNOWN INDICATION
     Dosage: SOLUTION INTRAVENOUS
     Route: 042
  23. HUMIRA [Suspect]
     Active Substance: ADALIMUMAB
     Indication: PRODUCT USED FOR UNKNOWN INDICATION
     Dosage: SOLUTION SUBCUTANEOUS
     Route: 058
  24. ORENCIA [Suspect]
     Active Substance: ABATACEPT
     Indication: RHEUMATOID ARTHRITIS
  25. ZOSTAVAX [Suspect]
     Active Substance: VARICELLA-ZOSTER VIRUS STRAIN OKA/MERCK LIVE ANTIGEN
     Indication: PRODUCT USED FOR UNKNOWN INDICATION
     Dosage: POWDER FOR SUSPENSION SUBCUTANEOUS
     Route: 058
  26. DICLOFENAC [Concomitant]
     Active Substance: DICLOFENAC
     Dosage: 100 MILLIGRAM DAILY;

REACTIONS (7)
  - Onychoclasis [Unknown]
  - Tooth loss [Unknown]
  - Alopecia [Unknown]
  - Drug intolerance [Unknown]
  - Neoplasm malignant [Unknown]
  - Drug ineffective [Unknown]
  - Lymphoma [Unknown]
